FAERS Safety Report 19053636 (Version 2)
Quarter: 2021Q2

REPORT INFORMATION
  Report Type: Report from Study
  Country: MX (occurrence: MX)
  Receive Date: 20210324
  Receipt Date: 20210420
  Transmission Date: 20210717
  Serious: Yes (Hospitalization, Other)
  Sender: FDA-Public Use
  Company Number: MX-BAYER-2020-273521

PATIENT
  Age: 22 Year
  Sex: Female

DRUGS (2)
  1. NEXAVAR [Suspect]
     Active Substance: SORAFENIB
     Indication: HEPATOCELLULAR CARCINOMA
     Dosage: 400 MG, BID
     Route: 048
     Dates: start: 20201120, end: 20210406
  2. CAPECITABINE. [Concomitant]
     Active Substance: CAPECITABINE
     Dosage: 2 PILLS EVERY 12 HOURS
     Route: 048
     Dates: start: 20210209

REACTIONS (18)
  - Oxygen saturation decreased [Not Recovered/Not Resolved]
  - Packed red blood cell transfusion [Not Recovered/Not Resolved]
  - Epistaxis [Not Recovered/Not Resolved]
  - Metastases to lung [Not Recovered/Not Resolved]
  - Anaemia [Recovering/Resolving]
  - Anaemia [Not Recovered/Not Resolved]
  - Feeling hot [Not Recovered/Not Resolved]
  - Asthenia [Not Recovered/Not Resolved]
  - Dyspepsia [Not Recovered/Not Resolved]
  - Throat irritation [Not Recovered/Not Resolved]
  - Body temperature increased [Recovered/Resolved]
  - Therapeutic product ineffective [Not Recovered/Not Resolved]
  - Haemoglobin decreased [Recovering/Resolving]
  - Anaemia [Not Recovered/Not Resolved]
  - Vomiting [Not Recovered/Not Resolved]
  - Weight decreased [Not Recovered/Not Resolved]
  - Cough [Not Recovered/Not Resolved]
  - Nausea [Not Recovered/Not Resolved]

NARRATIVE: CASE EVENT DATE: 20201120
